FAERS Safety Report 5195260-6 (Version None)
Quarter: 2006Q4

REPORT INFORMATION
  Report Type: 
  Country: None (occurrence: None)
  Receive Date: 20061229
  Receipt Date: 20061110
  Transmission Date: 20070319
  Serious: Yes (Hospitalization)
  Sender: FDA-Public Use
  Company Number: SE-PFIZER INC-2006139844

PATIENT
  Sex: Female
  Weight: 74 kg

DRUGS (4)
  1. XANOR DEPOT [Suspect]
     Route: 048
     Dates: start: 20060901, end: 20061108
  2. TENORMIN [Concomitant]
     Indication: ARRHYTHMIA
  3. MIANSERIN [Concomitant]
     Indication: SLEEP DISORDER
     Dates: start: 20060901, end: 20061201
  4. KALIUM RETARD [Concomitant]

REACTIONS (2)
  - HEART RATE IRREGULAR [None]
  - TACHYCARDIA [None]
